FAERS Safety Report 6581826-5 (Version None)
Quarter: 2010Q1

REPORT INFORMATION
  Report Type: 
  Country: None (occurrence: None)
  Receive Date: 20100215
  Receipt Date: 20100202
  Transmission Date: 20100710
  Serious: Yes (Hospitalization)
  Sender: FDA-Public Use
  Company Number: US-ELI_LILLY_AND_COMPANY-US201002002018

PATIENT
  Age: 12 Year
  Sex: Male

DRUGS (4)
  1. OLANZAPINE [Suspect]
     Indication: ANXIETY
     Dosage: 15 MG, DAILY (1/D)
     Dates: start: 20090101
  2. LAMICTAL [Concomitant]
  3. TOPAMAX [Concomitant]
  4. ADDERALL 30 [Concomitant]
     Dosage: UNK, UNKNOWN

REACTIONS (6)
  - ABNORMAL BEHAVIOUR [None]
  - AGGRESSION [None]
  - ANXIETY [None]
  - DRUG INEFFECTIVE [None]
  - IMPULSIVE BEHAVIOUR [None]
  - INTENTIONAL DRUG MISUSE [None]
